FAERS Safety Report 16500247 (Version 1)
Quarter: 2019Q3

REPORT INFORMATION
  Report Type: Report from Study
  Country: CN (occurrence: CN)
  Receive Date: 20190701
  Receipt Date: 20190701
  Transmission Date: 20191004
  Serious: Yes (Other)
  Sender: FDA-Public Use
  Company Number: CN-ROCHE-2341220

PATIENT

DRUGS (2)
  1. OXALIPLATIN. [Suspect]
     Active Substance: OXALIPLATIN
     Indication: GASTRIC CANCER
     Dosage: INTRAVENOUS DRIP FOR 2 HOURS, 130 MG/M2
     Route: 041
  2. CAPECITABINE. [Suspect]
     Active Substance: CAPECITABINE
     Indication: GASTRIC CANCER
     Dosage: ON DAY 1-14, IN THE MORNING AND EVENING
     Route: 048

REACTIONS (3)
  - Gastrointestinal disorder [Unknown]
  - Bone marrow failure [Unknown]
  - Alopecia [Unknown]
